FAERS Safety Report 8970101 (Version 1)
Quarter: 2012Q4

REPORT INFORMATION
  Report Type: 
  Country: US (occurrence: US)
  Receive Date: 20121217
  Receipt Date: 20121217
  Transmission Date: 20130627
  Serious: Yes (Other)
  Sender: FDA-Public Use
  Company Number: US-PFIZER INC-2012318507

PATIENT
  Age: 71 Year
  Sex: Female
  Weight: 81.63 kg

DRUGS (5)
  1. NEURONTIN [Suspect]
     Indication: FIBROMYALGIA
     Dosage: UNK
  2. NEURONTIN [Suspect]
     Indication: PAIN
  3. GABAPENTIN [Suspect]
     Indication: FIBROMYALGIA
     Dosage: UNK
  4. GABAPENTIN [Suspect]
     Indication: PAIN
  5. ATENOLOL [Concomitant]
     Indication: BLOOD PRESSURE HIGH
     Dosage: 100 mg, daily

REACTIONS (3)
  - Convulsion [Unknown]
  - Drug ineffective [Unknown]
  - Malaise [Unknown]
